FAERS Safety Report 26181915 (Version 1)
Quarter: 2025Q4

REPORT INFORMATION
  Report Type: Spontaneous
  Country: JP (occurrence: JP)
  Receive Date: 20251221
  Receipt Date: 20251221
  Transmission Date: 20260118
  Serious: Yes (Death)
  Sender: MERCK SHARP & DOHME LLC
  Company Number: JP-009507513-2362253

PATIENT
  Age: 74 Year
  Sex: Female

DRUGS (2)
  1. CILASTATIN SODIUM\IMIPENEM [Suspect]
     Active Substance: CILASTATIN SODIUM\IMIPENEM
     Indication: Infection
     Dates: start: 20251212, end: 20251213
  2. LIDOCAINE [Concomitant]
     Active Substance: LIDOCAINE
     Dates: start: 20251212, end: 20251213

REACTIONS (2)
  - Cardiac arrest [Fatal]
  - Expired product administered [Unknown]

NARRATIVE: CASE EVENT DATE: 20251212
